FAERS Safety Report 24385873 (Version 5)
Quarter: 2025Q1

REPORT INFORMATION
  Report Type: Report from Study
  Country: CA (occurrence: CA)
  Receive Date: 20241001
  Receipt Date: 20250120
  Transmission Date: 20250409
  Serious: Yes (Hospitalization, Other)
  Sender: TAKEDA
  Company Number: CA-TAKEDA-2016TUS022749

PATIENT
  Age: 65 Year
  Sex: Male
  Weight: 99.773 kg

DRUGS (19)
  1. VEDOLIZUMAB [Suspect]
     Active Substance: VEDOLIZUMAB
     Indication: Crohn^s disease
  2. VEDOLIZUMAB [Suspect]
     Active Substance: VEDOLIZUMAB
  3. VEDOLIZUMAB [Suspect]
     Active Substance: VEDOLIZUMAB
  4. VEDOLIZUMAB [Suspect]
     Active Substance: VEDOLIZUMAB
     Indication: Crohn^s disease
     Dosage: 108 MILLIGRAM, Q2WEEKS
     Dates: start: 20240710
  5. VEDOLIZUMAB [Suspect]
     Active Substance: VEDOLIZUMAB
     Dosage: 108 MILLIGRAM, Q2WEEKS
  6. VEDOLIZUMAB [Suspect]
     Active Substance: VEDOLIZUMAB
     Dosage: 300 MILLIGRAM, Q2WEEKS
  7. BENADRYL [Suspect]
     Active Substance: DIPHENHYDRAMINE HYDROCHLORIDE
     Indication: Premedication
  8. OMEPRAZOLE [Concomitant]
     Active Substance: OMEPRAZOLE
  9. ENALAPRIL [Concomitant]
     Active Substance: ENALAPRIL
  10. PREDNISONE [Concomitant]
     Active Substance: PREDNISONE
  11. METHOTREXATE [Concomitant]
     Active Substance: METHOTREXATE
  12. INDOMETHACIN [Concomitant]
     Active Substance: INDOMETHACIN
  13. ALLOPURINOL [Concomitant]
     Active Substance: ALLOPURINOL
  14. INDAPAMIDE [Concomitant]
     Active Substance: INDAPAMIDE
  15. RABEPRAZOLE [Concomitant]
     Active Substance: RABEPRAZOLE
  16. PANTOPRAZOLE SODIUM [Concomitant]
     Active Substance: PANTOPRAZOLE SODIUM
  17. LOSARTAN [Concomitant]
     Active Substance: LOSARTAN
  18. SUCRALFATE [Concomitant]
     Active Substance: SUCRALFATE
     Dosage: 1 GRAM, QID
  19. CRESTOR [Concomitant]
     Active Substance: ROSUVASTATIN CALCIUM

REACTIONS (4)
  - Hepatic failure [Recovered/Resolved]
  - Somnolence [Unknown]
  - Cystitis [Unknown]
  - Gout [Recovered/Resolved]

NARRATIVE: CASE EVENT DATE: 20161122
